FAERS Safety Report 9238199 (Version 2)
Quarter: 2013Q2

REPORT INFORMATION
  Report Type: Spontaneous
  Country: ZA (occurrence: ZA)
  Receive Date: 20130418
  Receipt Date: 20130530
  Transmission Date: 20140414
  Serious: Yes (Hospitalization, Other)
  Sender: FDA-Public Use
  Company Number: ZA-JNJFOC-20130406085

PATIENT
  Age: 78 Year
  Sex: Female

DRUGS (2)
  1. REVELLEX [Suspect]
     Indication: ANKYLOSING SPONDYLITIS
     Route: 042
     Dates: start: 20120710
  2. REVELLEX [Suspect]
     Indication: ANKYLOSING SPONDYLITIS
     Route: 042
     Dates: start: 20121211

REACTIONS (2)
  - Lung neoplasm malignant [Unknown]
  - Influenza [Recovered/Resolved]
